FAERS Safety Report 10047823 (Version 1)
Quarter: 2014Q1

REPORT INFORMATION
  Report Type: Spontaneous
  Country: US (occurrence: None)
  Receive Date: 20140306
  Receipt Date: 20140306
  Transmission Date: 20141002
  Serious: Yes (Other)
  Sender: FDA-Public Use
  Company Number: 163-21880-13100170

PATIENT
  Age: 63 Year
  Sex: Female

DRUGS (9)
  1. REVLIMID (LENALIDOMIDE) (CAPSULES) [Suspect]
     Indication: PLASMA CELL MYELOMA
     Route: 048
     Dates: start: 201008
  2. AMLODIPINE BESYLATE (AMLODIPINE BESILATE) (TABLETS) [Concomitant]
  3. LOTREL (LOTREL) (CAPSULES) [Concomitant]
  4. POTASSIUM CL (POTASSIUM CHLORIDE) (TABLETS) [Concomitant]
  5. HYDROCHLOROTHIAZIDE (HYDROCHLOROTHIAZIDE) [Concomitant]
  6. ACYCLOVIR (ACICLOVIR) (TABLETS) [Concomitant]
  7. ASPIRIN (ACETYLSALICYLIC ACID) (TABLETS) [Concomitant]
  8. OXYCODONE HCL (OXYCODONE HYDROCHLORIDE) (TABLETS) [Concomitant]
  9. KEPPRA (LEVETIRACETAM) (TABLETS) [Concomitant]

REACTIONS (1)
  - Pulmonary embolism [None]
